FAERS Safety Report 5074751-2 (Version None)
Quarter: 2006Q3

REPORT INFORMATION
  Report Type: 
  Country: None (occurrence: None)
  Receive Date: 20060804
  Receipt Date: 20060731
  Transmission Date: 20061208
  Serious: Yes (Other)
  Sender: FDA-Public Use
  Company Number: HQWYE341422JUL04

PATIENT
  Age: 54 Year
  Sex: Female
  Weight: 75.82 kg

DRUGS (8)
  1. PREMPRO [Suspect]
     Indication: MENOPAUSAL SYMPTOMS
     Dosage: 0.625MG/2.5MG, ORAL
     Route: 048
     Dates: start: 19970101, end: 20000101
  2. ESTROGENIC SUBSTANCE [Suspect]
  3. MEDROXYPROGESTERONE ACETATE [Suspect]
  4. PREMARIN [Suspect]
     Indication: MENOPAUSAL SYMPTOMS
     Dosage: SEE IMAGE
     Route: 048
     Dates: start: 20011201, end: 20020101
  5. PREMARIN [Suspect]
     Indication: MENOPAUSAL SYMPTOMS
     Dosage: SEE IMAGE
     Route: 048
     Dates: start: 20000101
  6. PROVERA [Suspect]
  7. LIPITOR [Concomitant]
  8. HYZAAR [Concomitant]

REACTIONS (1)
  - BREAST CANCER METASTATIC [None]
